FAERS Safety Report 9773078 (Version 2)
Quarter: 2014Q2

REPORT INFORMATION
  Report Type: Spontaneous
  Country: US (occurrence: None)
  Receive Date: 20131217
  Receipt Date: 20140417
  Transmission Date: 20141212
  Serious: Yes (Other)
  Sender: FDA-Public Use
  Company Number: AUR-APL-2013-10509

PATIENT
  Age: 73 Year
  Sex: Male
  Weight: 74.83 kg

DRUGS (6)
  1. HYDROCHLOROTHIAZIDE (HYDROCHLOROTHIAZIDE) [Suspect]
     Indication: HYPERTENSION
  2. LOSARTAN (LOSARTAN) [Suspect]
     Indication: HYPERTENSION
  3. LATANOPROST (LATANOPROST) (NONE) [Suspect]
     Indication: GLAUCOMA
     Dosage: ONE DROP IN RIGHT EYE,
  4. LATANOPROST (LATANOPROST) (NONE) [Suspect]
     Indication: GLAUCOMA
     Dates: start: 20131104
  5. HYDRAN [Suspect]
     Indication: HYPERTENSION
  6. LATANOPROST (LATANOPROST) (NONE) [Suspect]
     Indication: GLAUCOMA
     Dosage: ONE DROP IN RIGHT EYE , UNKNOWN
     Dates: start: 2012

REACTIONS (5)
  - Eye irritation [None]
  - Dry eye [None]
  - Hyperhidrosis [None]
  - Visual acuity reduced [None]
  - Vision blurred [None]
